FAERS Safety Report 8030839-5 (Version None)
Quarter: 2012Q1

REPORT INFORMATION
  Report Type: 
  Country: None (occurrence: None)
  Receive Date: 20120109
  Receipt Date: 20120103
  Transmission Date: 20120608
  Serious: Yes (Other)
  Sender: FDA-Public Use
  Company Number: BR-ROCHE-1028436

PATIENT
  Sex: Female

DRUGS (6)
  1. XOLAIR [Suspect]
     Indication: ASTHMA
  2. FORASEQ (BRAZIL) [Concomitant]
     Dosage: 12/400 MCG
  3. SINGULAIR [Concomitant]
  4. OMEPRAZOLE [Concomitant]
  5. COMBIVENT [Concomitant]
  6. LOSARTAN POTASSIUM [Concomitant]

REACTIONS (1)
  - ASTHMATIC CRISIS [None]
